FAERS Safety Report 5843970-7 (Version None)
Quarter: 2008Q3

REPORT INFORMATION
  Report Type: 
  Country: None (occurrence: None)
  Receive Date: 20080813
  Receipt Date: 20080801
  Transmission Date: 20090109
  Serious: Yes (Death, Hospitalization)
  Sender: FDA-Public Use
  Company Number: GB-ROCHE-578804

PATIENT
  Age: 71 Year
  Sex: Male
  Weight: 60 kg

DRUGS (5)
  1. CAPECITABINE [Suspect]
     Route: 048
     Dates: start: 20080621, end: 20080701
  2. CREON [Concomitant]
     Dosage: DOSE REPORTED AS 25000
     Route: 048
  3. FENTANYL [Concomitant]
     Route: 062
  4. GEMCITABINE [Concomitant]
     Route: 042
     Dates: start: 20080620
  5. OXALIPLATIN [Concomitant]
     Route: 042
     Dates: start: 20080620

REACTIONS (3)
  - DEHYDRATION [None]
  - DIARRHOEA [None]
  - NEUTROPENIC SEPSIS [None]
